FAERS Safety Report 16685217 (Version 5)
Quarter: 2021Q1

REPORT INFORMATION
  Report Type: Report from Study
  Country: None (occurrence: FR)
  Receive Date: 20190808
  Receipt Date: 20210206
  Transmission Date: 20210419
  Serious: Yes (Other)
  Sender: FDA-Public Use
  Company Number: FR-ABBVIE-19S-056-2820738-00

PATIENT
  Age: 67 Year
  Sex: Female

DRUGS (3)
  1. FEMARA [Concomitant]
     Active Substance: LETROZOLE
     Indication: BREAST NEOPLASM
     Route: 048
     Dates: start: 202002
  2. DUODOPA [Suspect]
     Active Substance: CARBIDOPA\LEVODOPA
     Indication: PRODUCT USED FOR UNKNOWN INDICATION
     Dosage: MD= 7 ML, ED= 2 ML, AND CFR DURING THE DAY = 3.4 ML/HOUR, EXTRA DOSE 2ML
     Route: 050
     Dates: start: 20180425
  3. DUODOPA [Suspect]
     Active Substance: CARBIDOPA\LEVODOPA

REACTIONS (9)
  - Eating disorder [Unknown]
  - Fall [Unknown]
  - Metastases to thorax [Unknown]
  - Jaw fracture [Unknown]
  - Weight decreased [Unknown]
  - Metastasis [Unknown]
  - Metastases to spine [Unknown]
  - Breast neoplasm [Not Recovered/Not Resolved]
  - Metastases to bone [Unknown]

NARRATIVE: CASE EVENT DATE: 201907
